FAERS Safety Report 6414262-2 (Version None)
Quarter: 2009Q4

REPORT INFORMATION
  Report Type: 
  Country: None (occurrence: None)
  Receive Date: 20091026
  Receipt Date: 20091014
  Transmission Date: 20100525
  Serious: Yes (Other)
  Sender: FDA-Public Use
  Company Number: JP-PFIZER INC-2009284341

PATIENT
  Age: 47 Year

DRUGS (2)
  1. AZULFIDINE [Suspect]
     Indication: RHEUMATOID ARTHRITIS
     Dosage: UNK
     Route: 048
     Dates: start: 20090903, end: 20091002
  2. LOCHOL [Concomitant]
     Dosage: UNK
     Route: 048
     Dates: start: 20090820

REACTIONS (1)
  - LIVER DISORDER [None]
